FAERS Safety Report 5081940-X (Version None)
Quarter: 2006Q3

REPORT INFORMATION
  Report Type: 
  Country: None (occurrence: None)
  Receive Date: 20060811
  Receipt Date: 20060731
  Transmission Date: 20061208
  Serious: Yes (Hospitalization)
  Sender: FDA-Public Use
  Company Number: 2006EU002244

PATIENT
  Age: 41 Year
  Sex: Male

DRUGS (4)
  1. PROGRAF [Suspect]
     Indication: RENAL AND PANCREAS TRANSPLANT
     Dosage: 6.5 MG/D
  2. PREDNISONE TAB [Suspect]
     Indication: RENAL AND PANCREAS TRANSPLANT
     Dosage: 10 MG/D
  3. MYCOPHENOLATE MOFETIL [Suspect]
     Indication: RENAL AND PANCREAS TRANSPLANT
     Dosage: 2 G/D
  4. COTRIM [Concomitant]

REACTIONS (4)
  - ASTHENIA [None]
  - CULTURE URINE POSITIVE [None]
  - MALAISE [None]
  - PYELONEPHRITIS ACUTE [None]
